FAERS Safety Report 7383643-5 (Version None)
Quarter: 2011Q1

REPORT INFORMATION
  Report Type: 
  Country: None (occurrence: None)
  Receive Date: 20110330
  Receipt Date: 20110322
  Transmission Date: 20110831
  Serious: Yes (Death, Other)
  Sender: FDA-Public Use
  Company Number: JP-ROCHE-690960

PATIENT
  Sex: Female
  Weight: 47 kg

DRUGS (6)
  1. AVASTIN [Suspect]
     Route: 041
     Dates: start: 20100129, end: 20100212
  2. AMLODIPINE [Concomitant]
     Route: 048
     Dates: end: 20100218
  3. GLYCERIN [Suspect]
     Route: 041
     Dates: end: 20100305
  4. OMEPRAL [Concomitant]
     Route: 041
  5. PREDONINE [Concomitant]
     Route: 041
     Dates: end: 20100305
  6. BLOPRESS [Concomitant]
     Route: 048
     Dates: end: 20100218

REACTIONS (3)
  - BASILAR ARTERY OCCLUSION [None]
  - CARDIO-RESPIRATORY ARREST [None]
  - HEADACHE [None]
